FAERS Safety Report 21749583 (Version 1)
Quarter: 2022Q4

REPORT INFORMATION
  Report Type: Spontaneous
  Country: US (occurrence: None)
  Receive Date: 20221217
  Receipt Date: 20221217
  Transmission Date: 20230113
  Serious: No
  Sender: FDA-Public Use
  Company Number: None

PATIENT
  Sex: Female

DRUGS (1)
  1. OPSUMIT [Suspect]
     Active Substance: MACITENTAN
     Indication: Pulmonary arterial hypertension
     Dosage: FREQUENCY : ONCE;?
     Route: 048
     Dates: start: 20190529

REACTIONS (4)
  - Device malfunction [None]
  - Headache [None]
  - Ocular hyperaemia [None]
  - COVID-19 [None]
